FAERS Safety Report 16051625 (Version 2)
Quarter: 2019Q2

REPORT INFORMATION
  Report Type: Spontaneous
  Country: US (occurrence: US)
  Receive Date: 20190308
  Receipt Date: 20190614
  Transmission Date: 20190711
  Serious: No
  Sender: FDA-Public Use
  Company Number: US-PFIZER INC-2019095873

PATIENT
  Age: 68 Year
  Sex: Female
  Weight: 95 kg

DRUGS (6)
  1. ATORVASTATIN [Concomitant]
     Active Substance: ATORVASTATIN
     Dosage: 10 MG, 1X/DAY
  2. LEXAPRO [Concomitant]
     Active Substance: ESCITALOPRAM OXALATE
     Dosage: 20 MG, UNK
  3. XGEVA [Concomitant]
     Active Substance: DENOSUMAB
     Dosage: 1 INJ EVERY 28 DAYS
  4. IBRANCE [Suspect]
     Active Substance: PALBOCICLIB
     Indication: BREAST CANCER METASTATIC
     Dosage: 75 MG, CYCLIC (FOR 21 DAYS, 7 DAYS OFF)
     Dates: start: 201811
  5. LEVOTHYROXINE. [Concomitant]
     Active Substance: LEVOTHYROXINE
     Indication: THYROID DISORDER
     Dosage: 137 MG, UNK
  6. FASLODEX [Concomitant]
     Active Substance: FULVESTRANT
     Dosage: 2 INJ EVERY 28 DAYS

REACTIONS (3)
  - Diarrhoea [Unknown]
  - Cough [Recovering/Resolving]
  - Pneumonitis [Not Recovered/Not Resolved]

NARRATIVE: CASE EVENT DATE: 201811
